FAERS Safety Report 4804964-3 (Version None)
Quarter: 2005Q4

REPORT INFORMATION
  Report Type: 
  Country: None (occurrence: None)
  Receive Date: 20051017
  Receipt Date: 20050609
  Transmission Date: 20060501
  Serious: Yes (Death, Other)
  Sender: FDA-Public Use
  Company Number: 2005HB000162

PATIENT
  Age: 79 Year
  Sex: Male

DRUGS (13)
  1. DIANEAL [Suspect]
     Dosage: 6 L; 2X A DAY; IP
     Route: 033
     Dates: start: 20020311, end: 20050514
  2. HECTOROL [Concomitant]
  3. RENAGEL [Concomitant]
  4. PLAVIX [Concomitant]
  5. ATENOLOL [Concomitant]
  6. VASOTEC [Concomitant]
  7. EPOGEN [Concomitant]
  8. PANTOPRAZOLE [Concomitant]
  9. FOLIC ACID [Concomitant]
  10. LASIX [Concomitant]
  11. ASPIRIN [Concomitant]
  12. MUPIPROCIN [Concomitant]
  13. SIMVASTATIN [Concomitant]

REACTIONS (1)
  - MYOCARDIAL INFARCTION [None]
